FAERS Safety Report 9414393 (Version 1)
Quarter: 2013Q3

REPORT INFORMATION
  Report Type: Spontaneous
  Country: US (occurrence: US)
  Receive Date: 20130723
  Receipt Date: 20130723
  Transmission Date: 20140515
  Serious: No
  Sender: FDA-Public Use
  Company Number: US-TEVA-382993USA

PATIENT
  Sex: Female

DRUGS (4)
  1. GABITRIL [Suspect]
     Indication: CONVULSION
  2. CARBATROL [Concomitant]
     Dosage: 600 MILLIGRAM DAILY;
     Route: 048
  3. LUVOX [Concomitant]
     Indication: CONVULSION
     Dosage: 150 MILLIGRAM DAILY;
     Route: 048
  4. RISPERDAL [Concomitant]
     Indication: CONVULSION
     Dosage: 1 MILLIGRAM DAILY;
     Route: 048

REACTIONS (1)
  - Irritability [Not Recovered/Not Resolved]
